FAERS Safety Report 6810832-8 (Version None)
Quarter: 2010Q2

REPORT INFORMATION
  Report Type: 
  Country: None (occurrence: None)
  Receive Date: 20100630
  Receipt Date: 20080616
  Transmission Date: 20101027
  Serious: No
  Sender: FDA-Public Use
  Company Number: US-PFIZER INC-2008050989

PATIENT
  Sex: Female
  Weight: 48.181 kg

DRUGS (8)
  1. ESTRING [Suspect]
     Indication: VULVOVAGINAL ADHESION
     Dates: start: 20080101
  2. ESTRING [Suspect]
     Indication: VULVOVAGINAL DRYNESS
  3. TAMOXIFEN [Concomitant]
  4. DOXEPIN HCL [Concomitant]
  5. KLONOPIN [Concomitant]
  6. FOSAMAX PLUS D [Concomitant]
  7. VITAMINS [Concomitant]
  8. ALL OTHER THERAPEUTIC PRODUCTS [Concomitant]

REACTIONS (3)
  - FUNGAL INFECTION [None]
  - SINUSITIS [None]
  - STREPTOCOCCAL INFECTION [None]
